FAERS Safety Report 11123555 (Version 5)
Quarter: 2015Q3

REPORT INFORMATION
  Report Type: Report from Study
  Country: US (occurrence: US)
  Receive Date: 20150519
  Receipt Date: 20150713
  Transmission Date: 20151125
  Serious: Yes (Other)
  Sender: FDA-Public Use
  Company Number: US-SA-2015SA015879

PATIENT
  Age: 43 Year
  Sex: Female

DRUGS (27)
  1. SPIRIVA [Suspect]
     Active Substance: TIOTROPIUM BROMIDE MONOHYDRATE
     Route: 065
  2. MEDROXYPROGESTERONE [Suspect]
     Active Substance: MEDROXYPROGESTERONE
     Route: 065
  3. LOSARTAN. [Suspect]
     Active Substance: LOSARTAN
     Route: 065
  4. VITAMIN D3 [Concomitant]
     Active Substance: CHOLECALCIFEROL
  5. ISOSORBIDE MONONITRATE. [Suspect]
     Active Substance: ISOSORBIDE MONONITRATE
     Route: 065
  6. MIRALAX [Suspect]
     Active Substance: POLYETHYLENE GLYCOL 3350
     Route: 065
  7. ATORVASTATIN [Suspect]
     Active Substance: ATORVASTATIN
     Route: 065
  8. AMANTADINE [Suspect]
     Active Substance: AMANTADINE
     Route: 065
  9. AUBAGIO [Suspect]
     Active Substance: TERIFLUNOMIDE
     Indication: MULTIPLE SCLEROSIS
     Route: 048
     Dates: start: 20150422
  10. AUBAGIO [Suspect]
     Active Substance: TERIFLUNOMIDE
     Indication: RELAPSING-REMITTING MULTIPLE SCLEROSIS
     Route: 048
     Dates: start: 20150422
  11. TAMSULOSIN [Suspect]
     Active Substance: TAMSULOSIN
     Route: 065
  12. AMLODIPINE [Suspect]
     Active Substance: AMLODIPINE BESYLATE
     Route: 065
  13. AUBAGIO [Suspect]
     Active Substance: TERIFLUNOMIDE
     Indication: RELAPSING-REMITTING MULTIPLE SCLEROSIS
     Route: 048
     Dates: start: 20150129, end: 20150410
  14. LATANOPROST. [Suspect]
     Active Substance: LATANOPROST
     Route: 065
  15. DIAZEPAM. [Suspect]
     Active Substance: DIAZEPAM
     Route: 065
  16. CLONIDINE. [Suspect]
     Active Substance: CLONIDINE
     Route: 065
  17. METOPROLOL [Suspect]
     Active Substance: METOPROLOL
     Route: 065
  18. ALBUTEROL. [Suspect]
     Active Substance: ALBUTEROL
     Route: 065
  19. NITROGLYCERINE [Suspect]
     Active Substance: NITROGLYCERIN
     Route: 065
  20. AUBAGIO [Suspect]
     Active Substance: TERIFLUNOMIDE
     Indication: MULTIPLE SCLEROSIS
     Route: 048
     Dates: start: 20150129, end: 20150410
  21. LATUDA [Suspect]
     Active Substance: LURASIDONE HYDROCHLORIDE
     Indication: BIPOLAR DISORDER
     Route: 065
  22. BACLOFEN. [Suspect]
     Active Substance: BACLOFEN
     Route: 065
  23. ESTRADIOL. [Suspect]
     Active Substance: ESTRADIOL
     Route: 065
  24. PROVENTIL [Suspect]
     Active Substance: ALBUTEROL
     Route: 065
  25. RANITIDINE [Suspect]
     Active Substance: RANITIDINE\RANITIDINE HYDROCHLORIDE
     Route: 065
  26. TRAZODONE [Suspect]
     Active Substance: TRAZODONE HYDROCHLORIDE
     Route: 065
  27. OXYBUTYNIN [Suspect]
     Active Substance: OXYBUTYNIN
     Route: 065

REACTIONS (27)
  - Fatigue [Not Recovered/Not Resolved]
  - Blister [Not Recovered/Not Resolved]
  - Asthenia [Unknown]
  - Unevaluable event [Unknown]
  - Central nervous system lesion [Not Recovered/Not Resolved]
  - Urticaria [Recovered/Resolved]
  - Tremor [Recovered/Resolved]
  - Catheterisation cardiac [Unknown]
  - Somnolence [Unknown]
  - Muscle spasms [Not Recovered/Not Resolved]
  - Chills [Recovered/Resolved]
  - Headache [Unknown]
  - Multiple sclerosis relapse [Unknown]
  - Angioplasty [Unknown]
  - Pruritus [Recovered/Resolved]
  - Fall [Unknown]
  - Blood pressure increased [Unknown]
  - Cardiac operation [Unknown]
  - Oedema peripheral [Unknown]
  - Temperature intolerance [Unknown]
  - Erythema [Not Recovered/Not Resolved]
  - Rash [Recovered/Resolved]
  - Optic neuritis [Not Recovered/Not Resolved]
  - Multiple sclerosis relapse [Not Recovered/Not Resolved]
  - Hypersensitivity [Recovered/Resolved]
  - Nuclear magnetic resonance imaging abnormal [Unknown]
  - Tremor [Recovered/Resolved]

NARRATIVE: CASE EVENT DATE: 2015
